FAERS Safety Report 10042337 (Version 1)
Quarter: 2014Q1

REPORT INFORMATION
  Report Type: Report from Study
  Country: US (occurrence: US)
  Receive Date: 20140327
  Receipt Date: 20140327
  Transmission Date: 20141002
  Serious: Yes (Hospitalization)
  Sender: FDA-Public Use
  Company Number: US-ASTRAZENECA-2014SE19297

PATIENT
  Age: 52 Year
  Sex: Female
  Weight: 66.7 kg

DRUGS (21)
  1. TOPROL XL [Suspect]
     Indication: CARDIAC DISORDER
     Route: 048
  2. TOPROL XL [Suspect]
     Indication: BLOOD PRESSURE ABNORMAL
     Route: 048
  3. NEXIUM [Suspect]
     Indication: GASTROOESOPHAGEAL REFLUX DISEASE
     Route: 048
     Dates: start: 2001, end: 2004
  4. NEXIUM [Suspect]
     Indication: GASTROOESOPHAGEAL REFLUX DISEASE
     Route: 048
     Dates: start: 2004, end: 2010
  5. NEXIUM [Suspect]
     Indication: GASTROOESOPHAGEAL REFLUX DISEASE
     Route: 048
     Dates: start: 2012, end: 201401
  6. LIPITOR [Concomitant]
     Indication: BLOOD CHOLESTEROL INCREASED
     Route: 048
  7. ASPIRIN [Concomitant]
     Indication: CARDIAC DISORDER
     Route: 048
  8. BISACODYL [Concomitant]
     Indication: CONSTIPATION
     Route: 048
  9. ISOSORBIDE DINITRATE [Concomitant]
     Indication: CARDIAC FAILURE CHRONIC
     Route: 048
  10. D3 [Concomitant]
     Indication: RENAL DISORDER
     Route: 048
  11. HYDRALAZINE [Concomitant]
     Indication: CARDIAC DISORDER
     Route: 048
  12. HYDRALAZINE [Concomitant]
     Indication: BLOOD PRESSURE ABNORMAL
     Route: 048
  13. AMBIEN [Concomitant]
     Indication: INSOMNIA
     Route: 048
  14. FERROUS SULFATE [Concomitant]
     Indication: RENAL DISORDER
     Route: 048
  15. DIOVAN [Concomitant]
     Indication: CARDIAC DISORDER
     Route: 048
  16. PERCOCET [Concomitant]
     Indication: BACK PAIN
     Dosage: 7.5-325MG BID
     Route: 048
  17. PERCOCET [Concomitant]
     Indication: MUSCULOSKELETAL PAIN
     Dosage: 7.5-325MG BID
     Route: 048
  18. LASIX [Concomitant]
     Indication: CARDIAC FAILURE CHRONIC
     Route: 048
  19. RENAL TAB [Concomitant]
     Indication: VITAMIN SUPPLEMENTATION
     Dosage: 1 TAB DAILY
     Route: 048
  20. COMPAZINE [Concomitant]
     Indication: NAUSEA
     Route: 048
  21. LANSOPRAZOLE [Concomitant]
     Indication: GASTROINTESTINAL DISORDER
     Route: 048

REACTIONS (12)
  - Cardiac failure congestive [Recovered/Resolved]
  - Renal failure acute [Recovered/Resolved]
  - Abdominal discomfort [Recovered/Resolved]
  - Vomiting [Recovered/Resolved]
  - Nausea [Recovered/Resolved]
  - Diabetes mellitus [Not Recovered/Not Resolved]
  - Flatulence [Not Recovered/Not Resolved]
  - Irritable bowel syndrome [Not Recovered/Not Resolved]
  - Sciatica [Not Recovered/Not Resolved]
  - Eructation [Not Recovered/Not Resolved]
  - Gastric disorder [Recovered/Resolved]
  - Intentional drug misuse [Recovered/Resolved]
